FAERS Safety Report 21576948 (Version 19)
Quarter: 2025Q1

REPORT INFORMATION
  Report Type: Report from Study
  Country: US (occurrence: US)
  Receive Date: 20221110
  Receipt Date: 20250101
  Transmission Date: 20250409
  Serious: No
  Sender: TAKEDA
  Company Number: US-TAKEDA-2022TUS013420

PATIENT
  Age: 63 Year
  Sex: Female
  Weight: 100 kg

DRUGS (29)
  1. GLASSIA [Suspect]
     Active Substance: .ALPHA.1-PROTEINASE INHIBITOR HUMAN
     Indication: Emphysema
     Dosage: UNK UNK, 1/WEEK
     Dates: start: 20220202
  2. GLASSIA [Suspect]
     Active Substance: .ALPHA.1-PROTEINASE INHIBITOR HUMAN
     Indication: Alpha-1 antitrypsin deficiency
  3. GLASSIA [Suspect]
     Active Substance: .ALPHA.1-PROTEINASE INHIBITOR HUMAN
     Dosage: UNK UNK, 1/WEEK
  4. GLASSIA [Suspect]
     Active Substance: .ALPHA.1-PROTEINASE INHIBITOR HUMAN
     Dosage: 60 MILLIGRAM/KILOGRAM, 1/WEEK
  5. EPINEPHRINE [Concomitant]
     Active Substance: EPINEPHRINE
  6. VITAMIN C [Concomitant]
     Active Substance: ASCORBIC ACID
  7. FAMOTIDINE [Concomitant]
     Active Substance: FAMOTIDINE
  8. VITAMIN B [Concomitant]
     Active Substance: VITAMIN B
  9. VITAMIN D3 [Concomitant]
     Active Substance: CHOLECALCIFEROL
  10. ALLEGRA ALLERGY [Concomitant]
     Active Substance: FEXOFENADINE HYDROCHLORIDE
  11. BETAMETHASONE DIPROPIONATE [Concomitant]
     Active Substance: BETAMETHASONE DIPROPIONATE
  12. SODIUM CHLORIDE [Concomitant]
     Active Substance: SODIUM CHLORIDE
  13. SERTRALINE HYDROCHLORIDE [Concomitant]
     Active Substance: SERTRALINE HYDROCHLORIDE
  14. ALBUTEROL SULFATE [Concomitant]
     Active Substance: ALBUTEROL SULFATE
  15. TRELEGY ELLIPTA [Concomitant]
     Active Substance: FLUTICASONE FUROATE\UMECLIDINIUM BROMIDE\VILANTEROL TRIFENATATE
  16. FLONASE ALLERGY RELIEF [Concomitant]
     Active Substance: FLUTICASONE PROPIONATE
  17. MECLIZINE [Concomitant]
     Active Substance: MECLIZINE HYDROCHLORIDE
  18. DIPHENHYDRAMINE HYDROCHLORIDE [Concomitant]
     Active Substance: DIPHENHYDRAMINE HYDROCHLORIDE
  19. IBUPROFEN [Concomitant]
     Active Substance: IBUPROFEN
  20. TRIAMCINOLONE ACETONIDE [Concomitant]
     Active Substance: TRIAMCINOLONE ACETONIDE
  21. DIPHENHYDRAMINE [Concomitant]
     Active Substance: DIPHENHYDRAMINE
  22. HEPARIN [Concomitant]
     Active Substance: HEPARIN SODIUM
  23. OXYCODONE HYDROCHLORIDE [Concomitant]
     Active Substance: OXYCODONE HYDROCHLORIDE
  24. MIRALAX [Concomitant]
     Active Substance: POLYETHYLENE GLYCOL 3350
  25. ACETAMINOPHEN [Concomitant]
     Active Substance: ACETAMINOPHEN
  26. MECLIZINE HYDROCHLORIDE [Concomitant]
     Active Substance: MECLIZINE HYDROCHLORIDE
  27. TRIAMCINOLONE [Concomitant]
     Active Substance: TRIAMCINOLONE
  28. PROMETHAZINE HYDROCHLORIDE [Concomitant]
     Active Substance: PROMETHAZINE HYDROCHLORIDE
  29. AMOXICILLIN\CLAVULANATE POTASSIUM [Concomitant]
     Active Substance: AMOXICILLIN\CLAVULANATE POTASSIUM

REACTIONS (23)
  - Infusion site paraesthesia [Unknown]
  - Hypertension [Unknown]
  - Sleep apnoea syndrome [Unknown]
  - Crepitations [Unknown]
  - Vertigo [Unknown]
  - Rash pruritic [Unknown]
  - Insurance issue [Recovering/Resolving]
  - Oxygen saturation decreased [Recovering/Resolving]
  - Product use issue [Unknown]
  - Extra dose administered [Unknown]
  - Blood pressure increased [Unknown]
  - Pain in extremity [Unknown]
  - Multiple allergies [Recovering/Resolving]
  - Vomiting [Unknown]
  - Asthenia [Recovering/Resolving]
  - Hypersensitivity [Recovering/Resolving]
  - Dizziness [Unknown]
  - Fatigue [Recovering/Resolving]
  - Cough [Recovering/Resolving]
  - Dyspnoea [Recovering/Resolving]
  - Headache [Recovered/Resolved]
  - Nausea [Unknown]
  - Product dose omission issue [Recovered/Resolved]

NARRATIVE: CASE EVENT DATE: 20220214
